FAERS Safety Report 4303465-9 (Version None)
Quarter: 2004Q1

REPORT INFORMATION
  Report Type: 
  Country: None (occurrence: None)
  Receive Date: 20040223
  Receipt Date: 20040218
  Transmission Date: 20041129
  Serious: Yes (Other)
  Sender: FDA-Public Use
  Company Number: STA-AE-04-MTX-071

PATIENT
  Age: 37 Year
  Sex: Female

DRUGS (7)
  1. METHOTREXATE [Suspect]
     Indication: RHEUMATOID ARTHRITIS
  2. REMICADE [Suspect]
     Indication: RHEUMATOID ARTHRITIS
     Dates: end: 20031007
  3. MULTI-VITAMINS [Concomitant]
  4. PREDNISONE [Concomitant]
  5. FOLATE SODIUM (FOLATE SODIUM) [Concomitant]
  6. AMBIEN [Concomitant]
  7. CALTRATE600+VITAMIN D (CALCIUM CARBONATE/VITAMIN D) [Concomitant]

REACTIONS (3)
  - LUPUS-LIKE SYNDROME [None]
  - PERICARDITIS [None]
  - TREATMENT NONCOMPLIANCE [None]
